FAERS Safety Report 22007811 (Version 1)
Quarter: 2023Q1

REPORT INFORMATION
  Report Type: Spontaneous
  Country: US (occurrence: US)
  Receive Date: 20230218
  Receipt Date: 20230218
  Transmission Date: 20230417
  Serious: Yes (Hospitalization)
  Sender: FDA-Public Use
  Company Number: US-002147023-NVSC2023US033113

PATIENT
  Sex: Female

DRUGS (2)
  1. TAFINLAR [Suspect]
     Active Substance: DABRAFENIB MESYLATE
     Indication: Neoplasm malignant
     Dosage: 100 MG, Q12H
     Route: 048
     Dates: start: 202301
  2. MEKINIST [Suspect]
     Active Substance: TRAMETINIB DIMETHYL SULFOXIDE
     Indication: Neoplasm malignant
     Dosage: 1 MG, QD
     Route: 048
     Dates: start: 202301

REACTIONS (5)
  - Limb discomfort [Unknown]
  - Pain [Unknown]
  - Back pain [Unknown]
  - Pyrexia [Unknown]
  - Asthenia [Unknown]
